FAERS Safety Report 6903798-3 (Version None)
Quarter: 2010Q3

REPORT INFORMATION
  Report Type: 
  Country: None (occurrence: None)
  Receive Date: 20100804
  Receipt Date: 20081215
  Transmission Date: 20110219
  Serious: No
  Sender: FDA-Public Use
  Company Number: US-PFIZER INC-2008097938

PATIENT
  Sex: Female
  Weight: 81.646 kg

DRUGS (11)
  1. LYRICA [Suspect]
     Indication: TRIGEMINAL NEURALGIA
     Dosage: 50 MG, 2X/DAY
     Dates: start: 20070621
  2. LYRICA [Suspect]
     Indication: NEUROPATHY PERIPHERAL
  3. ALLEGRA [Concomitant]
  4. ROZEREM [Concomitant]
  5. ZETIA [Concomitant]
  6. SALBUTAMOL [Concomitant]
     Dosage: UNK
  7. MULTI-VITAMINS [Concomitant]
     Dosage: UNK
  8. CLIMARA [Concomitant]
     Dosage: UNK
  9. ADVAIR DISKUS 100/50 [Concomitant]
  10. CELEBREX [Concomitant]
     Dosage: UNK
  11. ZOVIRAX [Concomitant]
     Dosage: UNK

REACTIONS (5)
  - CONFUSIONAL STATE [None]
  - DRY MOUTH [None]
  - NAIL INFECTION [None]
  - NAIL PIGMENTATION [None]
  - SOMNOLENCE [None]
